FAERS Safety Report 9518792 (Version 3)
Quarter: 2014Q1

REPORT INFORMATION
  Report Type: Spontaneous
  Country: FR (occurrence: FR)
  Receive Date: 20130912
  Receipt Date: 20140226
  Transmission Date: 20141002
  Serious: Yes (Hospitalization)
  Sender: FDA-Public Use
  Company Number: FR-PFIZER INC-2013261593

PATIENT
  Age: 91 Year
  Sex: Female

DRUGS (9)
  1. CORDARONE [Suspect]
     Indication: ARRHYTHMIA
     Dosage: 200 MG, DAILY
     Route: 048
     Dates: start: 201304, end: 20130826
  2. CARDENSIEL [Concomitant]
  3. KARDEGIC [Concomitant]
  4. TRIATEC [Concomitant]
  5. CRESTOR [Concomitant]
  6. INEXIUM [Concomitant]
  7. ATARAX [Concomitant]
     Dosage: UNK
  8. NOCTAMIDE [Concomitant]
  9. PREVISCAN [Concomitant]

REACTIONS (12)
  - Hypothyroidism [Recovering/Resolving]
  - Inappropriate antidiuretic hormone secretion [Unknown]
  - Hyponatraemia [Recovered/Resolved]
  - Constipation [Recovered/Resolved]
  - Decreased appetite [Recovered/Resolved]
  - Myxoedema [Recovered/Resolved]
  - Bradycardia [Recovered/Resolved]
  - Asthenia [Recovered/Resolved]
  - Fall [Unknown]
  - Hip fracture [Unknown]
  - Anaemia [Unknown]
  - Haematoma [Unknown]
